FAERS Safety Report 17451346 (Version 3)
Quarter: 2020Q2

REPORT INFORMATION
  Report Type: Spontaneous
  Country: US (occurrence: US)
  Receive Date: 20200224
  Receipt Date: 20200625
  Transmission Date: 20200713
  Serious: No
  Sender: FDA-Public Use
  Company Number: US-ASTRAZENECA-2020SE15202

PATIENT
  Age: 779 Month
  Sex: Male
  Weight: 124.7 kg

DRUGS (2)
  1. BYDUREON [Suspect]
     Active Substance: EXENATIDE
     Indication: DRUG THERAPY
     Route: 058
  2. INSULIN [Concomitant]
     Active Substance: INSULIN NOS

REACTIONS (4)
  - Weight decreased [Unknown]
  - Device issue [Unknown]
  - Arthritis [Unknown]
  - Eructation [Recovered/Resolved]

NARRATIVE: CASE EVENT DATE: 201911
